FAERS Safety Report 22085130 (Version 1)
Quarter: 2023Q1

REPORT INFORMATION
  Report Type: Spontaneous
  Country: DE (occurrence: DE)
  Receive Date: 20230310
  Receipt Date: 20230310
  Transmission Date: 20230418
  Serious: Yes (Death, Life-Threatening, Hospitalization, Other)
  Sender: FDA-Public Use
  Company Number: None

PATIENT
  Age: 48 Year
  Sex: Female
  Weight: 65 kg

DRUGS (2)
  1. ENOXAPARIN SODIUM [Suspect]
     Active Substance: ENOXAPARIN SODIUM
     Indication: Thrombosis prophylaxis
     Dosage: 0.4
     Route: 058
     Dates: start: 20230203, end: 20230207
  2. HEPARIN [Suspect]
     Active Substance: HEPARIN SODIUM
     Indication: Aneurysm repair
     Dosage: HEPARIN PERFUSOR PERIOPERATIVELY
     Dates: start: 20230203

REACTIONS (3)
  - Cerebral venous sinus thrombosis [Fatal]
  - Cerebral haemorrhage [Unknown]
  - Heparin-induced thrombocytopenia [Unknown]

NARRATIVE: CASE EVENT DATE: 20230214
